FAERS Safety Report 17623075 (Version 1)
Quarter: 2020Q2

REPORT INFORMATION
  Report Type: Spontaneous
  Country: KR (occurrence: KR)
  Receive Date: 20200403
  Receipt Date: 20200403
  Transmission Date: 20200713
  Serious: Yes (Hospitalization, Other)
  Sender: FDA-Public Use
  Company Number: KR-009507513-2003KOR004046

PATIENT
  Sex: Female

DRUGS (4)
  1. SYNTHROID [Concomitant]
     Active Substance: LEVOTHYROXINE SODIUM
     Dosage: UNK
  2. SYNTHROID [Concomitant]
     Active Substance: LEVOTHYROXINE SODIUM
     Dosage: UNK
  3. IMPLANON NXT [Suspect]
     Active Substance: ETONOGESTREL
     Dosage: 1 DOSAGE FORM, NEXT IMPLANT, UNK
     Route: 059
     Dates: start: 20191127, end: 20200312
  4. IMPLANON NXT [Suspect]
     Active Substance: ETONOGESTREL
     Indication: CONTRACEPTION
     Dosage: UNK
     Route: 059
     Dates: start: 2015

REACTIONS (11)
  - Complication associated with device [Recovered/Resolved]
  - Poor quality sleep [Unknown]
  - Complication of device removal [Recovered/Resolved]
  - Pelvic pain [Unknown]
  - Headache [Unknown]
  - Device related infection [Unknown]
  - Limb discomfort [Unknown]
  - Menstruation irregular [Unknown]
  - Implant site inflammation [Unknown]
  - Device dislocation [Recovered/Resolved]
  - Polymenorrhoea [Unknown]

NARRATIVE: CASE EVENT DATE: 2019
